FAERS Safety Report 8112185-4 (Version None)
Quarter: 2011Q4

REPORT INFORMATION
  Report Type: 
  Country: None (occurrence: None)
  Receive Date: 20111223
  Receipt Date: 20110824
  Transmission Date: 20120403
  Serious: Yes (Other)
  Sender: FDA-Public Use
  Company Number: PHEH2011US02373

PATIENT
  Age: 11 Year
  Sex: Male

DRUGS (1)
  1. FOCALIN XR [Suspect]
     Dosage: 10 MG/1XDAY

REACTIONS (1)
  - TIC [None]
